FAERS Safety Report 7720880-1 (Version None)
Quarter: 2011Q3

REPORT INFORMATION
  Report Type: 
  Country: None (occurrence: None)
  Receive Date: 20110825
  Receipt Date: 20110810
  Transmission Date: 20111222
  Serious: No
  Sender: FDA-Public Use
  Company Number: 15806227

PATIENT
  Age: 56 Year
  Sex: Male

DRUGS (6)
  1. APIXABAN [Suspect]
     Indication: EMBOLISM
     Dosage: 1 DOSAGE FORM 1 DAY
     Route: 048
     Dates: start: 20101201, end: 20110517
  2. WARFARIN SODIUM [Suspect]
     Indication: EMBOLISM
     Dosage: 4 MILLIGRAM 1 DAY
     Route: 048
     Dates: start: 20101201, end: 20110516
  3. DETRALEX (DIOSMIN + HESPERIDIN) [Concomitant]
  4. ENOXAPARIN SODIUM [Suspect]
     Indication: EMBOLISM
     Dosage: 90 MILLIGRAM 1 DAY
     Route: 058
     Dates: start: 20101201, end: 20101210
  5. PLACEBO [Suspect]
     Indication: EMBOLISM
     Dates: start: 20101201
  6. MELOXICAM [Concomitant]

REACTIONS (4)
  - GAMMA-GLUTAMYLTRANSFERASE INCREASED [None]
  - ALANINE AMINOTRANSFERASE INCREASED [None]
  - BILIRUBIN CONJUGATED INCREASED [None]
  - PANCREATIC CARCINOMA [None]
